FAERS Safety Report 21328756 (Version 1)
Quarter: 2022Q3

REPORT INFORMATION
  Report Type: Spontaneous
  Country: US (occurrence: None)
  Receive Date: 20220906
  Receipt Date: 20220906
  Transmission Date: 20221027
  Serious: Yes (Life-Threatening, Disabling, Other)
  Sender: FDA-Public Use
  Company Number: None

PATIENT
  Age: 45 Year
  Sex: Male
  Weight: 99.79 kg

DRUGS (9)
  1. DEXAMETHASONE [Suspect]
     Active Substance: DEXAMETHASONE
  2. METHYLPREDNISOLONE [Suspect]
     Active Substance: METHYLPREDNISOLONE
  3. DIETARY SUPPLEMENT [Suspect]
     Active Substance: DIETARY SUPPLEMENT
     Indication: Arthralgia
     Dosage: FREQUENCY : 3 TIMES A DAY;?
     Route: 048
     Dates: start: 201906, end: 202109
  4. METFORMIN [Concomitant]
     Active Substance: METFORMIN HYDROCHLORIDE
  5. LOSARTAN [Concomitant]
     Active Substance: LOSARTAN
  6. GABAPENTIN [Concomitant]
     Active Substance: GABAPENTIN
  7. MOTRIN [Concomitant]
     Active Substance: IBUPROFEN
  8. d3 vitamins [Concomitant]
  9. b12 vitamins [Concomitant]

REACTIONS (9)
  - Rash [None]
  - Decreased appetite [None]
  - Ageusia [None]
  - Back pain [None]
  - Pain in extremity [None]
  - Peripheral swelling [None]
  - Blood glucose increased [None]
  - Neuropathy peripheral [None]
  - Product complaint [None]

NARRATIVE: CASE EVENT DATE: 20210926
